FAERS Safety Report 17222900 (Version 1)
Quarter: 2020Q1

REPORT INFORMATION
  Report Type: Spontaneous
  Country: US (occurrence: US)
  Receive Date: 20200102
  Receipt Date: 20200102
  Transmission Date: 20200409
  Serious: No
  Sender: FDA-Public Use
  Company Number: US-ASTRAZENECA-2019SF76083

PATIENT
  Sex: Male

DRUGS (1)
  1. BYETTA [Suspect]
     Active Substance: EXENATIDE
     Indication: TYPE 2 DIABETES MELLITUS
     Route: 058

REACTIONS (7)
  - Device issue [Unknown]
  - Blood glucose increased [Unknown]
  - Peripheral coldness [Unknown]
  - Intentional product misuse [Unknown]
  - Constipation [Recovered/Resolved]
  - Injection site pain [Unknown]
  - Hypertension [Unknown]
